FAERS Safety Report 25392021 (Version 1)
Quarter: 2025Q2

REPORT INFORMATION
  Report Type: Spontaneous
  Country: US (occurrence: US)
  Receive Date: 20250603
  Receipt Date: 20250603
  Transmission Date: 20250717
  Serious: No
  Sender: Thea Pharma
  Company Number: US-THEA-2024001704

PATIENT
  Sex: Male

DRUGS (6)
  1. AZASITE [Suspect]
     Active Substance: AZITHROMYCIN MONOHYDRATE
     Indication: Chalazion
     Dosage: AT BEDTIME ON LID MARGIN?OF BOTH EYELIDS
     Route: 047
     Dates: start: 2024
  2. FINASTERIDE [Concomitant]
     Active Substance: FINASTERIDE
     Indication: Product used for unknown indication
  3. DOXYCYCLINE [Concomitant]
     Active Substance: DOXYCYCLINE
     Indication: Product used for unknown indication
  4. TAMSULOSIN [Concomitant]
     Active Substance: TAMSULOSIN
     Indication: Product used for unknown indication
  5. PRILOSEC [Concomitant]
     Active Substance: OMEPRAZOLE MAGNESIUM
     Indication: Product used for unknown indication
  6. FISH OIL [Concomitant]
     Active Substance: FISH OIL
     Indication: Product used for unknown indication

REACTIONS (4)
  - Periorbital irritation [Recovering/Resolving]
  - Eye pruritus [Recovering/Resolving]
  - Off label use [Unknown]
  - Product use in unapproved indication [Unknown]
